FAERS Safety Report 10648927 (Version 1)
Quarter: 2014Q4

REPORT INFORMATION
  Report Type: Spontaneous
  Country: US (occurrence: None)
  Receive Date: 20141205
  Receipt Date: 20141205
  Transmission Date: 20150529
  Serious: No
  Sender: FDA-Public Use
  Company Number: USA-2014104468

PATIENT
  Age: 71 Year
  Sex: Male
  Weight: 102 kg

DRUGS (14)
  1. TAMSULOSIN(TAMSULOSIN) (UNKNOWN) [Concomitant]
  2. DEXAMETHASONE(DEXAMETHASONE) (UNKNOWN) [Concomitant]
  3. ALLOPURINOL (ALLOPURINOL) (UNKNOWN) [Concomitant]
  4. POMALYST [Suspect]
     Active Substance: POMALIDOMIDE
     Indication: PLASMA CELL MYELOMA
     Dosage: 21 IN 21 D
     Route: 048
     Dates: start: 20140129
  5. ACYCLOVIR(ACICLOVIR) (UNKNOWN) [Concomitant]
  6. VITAMIN D3(COLECALCIFEROL) (UNKNOWN) [Concomitant]
  7. BENADRYL(DIPHENHYDRAMINE HYDROCHLORIDE) (UNKNOWN) [Concomitant]
  8. ASPIRIN(ACETYLSALICYLIC ACID) (UNKNOWN) [Concomitant]
  9. BENICAR(OLMESARTAN MEDOXOMIL) (UNKNOWN) [Concomitant]
  10. VITAMIN B COMPLEX(VITAMIN B COMPLEX) (UNKNOWN) [Concomitant]
  11. DEPO-TESTOSTERONE(TESTOSTERONE CIPIONATE)(UNKNOWN) [Concomitant]
  12. CARVEDILOL(CARVEDILOL) (UNKNOWN) [Concomitant]
  13. ATIVAN(LORAZEPAM) (UNKNOWN) [Concomitant]
  14. LEVOTHYROXINE(LEVOTHYROXINE) (UNKNOWN) [Concomitant]

REACTIONS (1)
  - Nephrolithiasis [None]

NARRATIVE: CASE EVENT DATE: 201407
